FAERS Safety Report 7293725-4 (Version None)
Quarter: 2011Q1

REPORT INFORMATION
  Report Type: 
  Country: None (occurrence: None)
  Receive Date: 20110215
  Receipt Date: 20110202
  Transmission Date: 20110831
  Serious: Yes (Other)
  Sender: FDA-Public Use
  Company Number: BR-CUBIST-2011S1000061

PATIENT
  Age: 70 Year
  Sex: Male

DRUGS (5)
  1. VANCOMYCIN [Concomitant]
  2. VANCOMYCIN [Concomitant]
  3. CUBICIN [Suspect]
     Route: 042
  4. CUBICIN [Suspect]
     Indication: SKIN INFECTION
     Route: 042
  5. CUBICIN [Suspect]
     Route: 042

REACTIONS (4)
  - DEVICE RELATED INFECTION [None]
  - BACTERAEMIA [None]
  - INFECTION [None]
  - DRUG INEFFECTIVE [None]
